FAERS Safety Report 9852283 (Version 1)
Quarter: 2014Q1

REPORT INFORMATION
  Report Type: Spontaneous
  Country: US (occurrence: US)
  Receive Date: 20140129
  Receipt Date: 20140129
  Transmission Date: 20141002
  Serious: No
  Sender: FDA-Public Use
  Company Number: US-009507513-1401USA010514

PATIENT
  Age: 67 Year
  Sex: Male

DRUGS (2)
  1. PRIMAXIN I.V. [Suspect]
     Indication: SURGERY
     Dosage: 500 MG, Q6H
     Route: 042
     Dates: start: 20140121
  2. TYLENOL [Concomitant]

REACTIONS (1)
  - White blood cell count decreased [Not Recovered/Not Resolved]
